FAERS Safety Report 24854706 (Version 1)
Quarter: 2025Q1

REPORT INFORMATION
  Report Type: Spontaneous
  Country: MA (occurrence: MA)
  Receive Date: 20250117
  Receipt Date: 20250117
  Transmission Date: 20250409
  Serious: Yes (Disabling, Other)
  Sender: AJANTA PHARMA USA INC
  Company Number: MA-AJANTA-2025AJA00002

PATIENT
  Age: 30 Year
  Sex: Male

DRUGS (5)
  1. RISPERIDONE [Suspect]
     Active Substance: RISPERIDONE
     Indication: Schizophrenia
     Dates: start: 2024, end: 2024
  2. RISPERIDONE [Suspect]
     Active Substance: RISPERIDONE
     Dates: start: 2024, end: 2024
  3. RISPERIDONE [Suspect]
     Active Substance: RISPERIDONE
     Dates: start: 2024, end: 2024
  4. CHLORPROMAZINE [Concomitant]
     Active Substance: CHLORPROMAZINE
     Dates: start: 2024, end: 2024
  5. ALPRAZOLAM [Concomitant]
     Active Substance: ALPRAZOLAM
     Dates: start: 2024, end: 2024

REACTIONS (1)
  - Dysphemia [Recovered/Resolved]

NARRATIVE: CASE EVENT DATE: 20240101
